FAERS Safety Report 7537898-4 (Version None)
Quarter: 2011Q2

REPORT INFORMATION
  Report Type: 
  Country: None (occurrence: None)
  Receive Date: 20110609
  Receipt Date: 20110606
  Transmission Date: 20111010
  Serious: Yes (Other)
  Sender: FDA-Public Use
  Company Number: CL-ABBOTT-11P-034-0730805-00

PATIENT
  Sex: Female
  Weight: 70 kg

DRUGS (3)
  1. HUMIRA [Suspect]
     Indication: ANKYLOSING SPONDYLITIS
     Route: 058
     Dates: start: 20101115, end: 20110510
  2. CELECOXIB [Concomitant]
     Indication: ANKYLOSING SPONDYLITIS
     Route: 048
     Dates: start: 20090101
  3. ACETAMINOPHEN/TRAMDOL CHLORIDRATE [Concomitant]
     Indication: ANKYLOSING SPONDYLITIS
     Dosage: 650/75MG DAILY: 325/37.5MG BID
     Route: 048
     Dates: start: 20100601

REACTIONS (2)
  - HYPERTENSION [None]
  - PLEURISY [None]
